FAERS Safety Report 15673927 (Version 1)
Quarter: 2018Q4

REPORT INFORMATION
  Report Type: Spontaneous
  Country: FR (occurrence: FR)
  Receive Date: 20181129
  Receipt Date: 20181129
  Transmission Date: 20190205
  Serious: Yes (Other)
  Sender: FDA-Public Use
  Company Number: FR-009507513-1803FRA003440

PATIENT
  Age: 75 Year
  Sex: Female

DRUGS (6)
  1. MODOPAR [Concomitant]
     Active Substance: BENSERAZIDE HYDROCHLORIDE\LEVODOPA
     Indication: PARKINSON^S DISEASE
     Dosage: 2 TABLETS
     Route: 048
     Dates: start: 2016
  2. MODOPAR [Concomitant]
     Active Substance: BENSERAZIDE HYDROCHLORIDE\LEVODOPA
     Dosage: UNK
  3. CARBIDOPA (+) LEVODOPA [Suspect]
     Active Substance: CARBIDOPA\LEVODOPA
     Indication: PARKINSON^S DISEASE
     Dosage: UNK
     Route: 048
     Dates: start: 201806
  4. MODOPAR [Concomitant]
     Active Substance: BENSERAZIDE HYDROCHLORIDE\LEVODOPA
     Dosage: 7 TABLETS DAILY
     Route: 048
     Dates: start: 201707
  5. SINEMET L.P. [Suspect]
     Active Substance: CARBIDOPA\LEVODOPA
     Indication: PARKINSON^S DISEASE
     Dosage: 7 DF (STRENGTH: 100/25), EVERY 3 HOURS DURING THE DAY AND EVERY 4 HOURS DURING THE NIGHT(QD)
     Route: 048
     Dates: start: 20180821
  6. MODOPAR [Concomitant]
     Active Substance: BENSERAZIDE HYDROCHLORIDE\LEVODOPA
     Dosage: 6 TABLETS
     Route: 048
     Dates: end: 201707

REACTIONS (6)
  - Anxiety [Unknown]
  - Fatigue [Unknown]
  - Cataract operation [Unknown]
  - Constipation [Recovered/Resolved]
  - Dyskinesia [Recovered/Resolved]
  - Candida infection [Unknown]

NARRATIVE: CASE EVENT DATE: 2018
